FAERS Safety Report 4596375-3 (Version None)
Quarter: 2005Q1

REPORT INFORMATION
  Report Type: 
  Country: None (occurrence: None)
  Receive Date: 20050228
  Receipt Date: 20050216
  Transmission Date: 20050727
  Serious: Yes (Hospitalization)
  Sender: FDA-Public Use
  Company Number: 2005031844

PATIENT
  Age: 36 Year
  Sex: Female

DRUGS (4)
  1. CELEBREX [Suspect]
     Indication: OSTEOARTHRITIS
     Dosage: 200 MG (200 MG, 1 IN 1 D) ORAL
     Route: 048
  2. SERTRALINE HCL [Concomitant]
  3. BROMAZEPAM [Concomitant]
  4. METOCLOPRAMIDE [Concomitant]

REACTIONS (1)
  - EMBOLISM [None]
